FAERS Safety Report 4323431-7 (Version None)
Quarter: 2004Q1

REPORT INFORMATION
  Report Type: 
  Country: None (occurrence: None)
  Receive Date: 20040322
  Receipt Date: 20040316
  Transmission Date: 20041129
  Serious: Yes (Disabling, Congenital Anomaly)
  Sender: FDA-Public Use
  Company Number: 2002-04-0072

PATIENT
  Age: 1 Day
  Weight: 3.4 kg

DRUGS (2)
  1. VIRAFERONPEG [Suspect]
     Dosage: 80 UG SUBCUTANEOUS
     Route: 058
     Dates: start: 20020213
  2. REBETOL [Suspect]
     Dosage: 1200 MG QD ORAL
     Route: 048
     Dates: start: 20020213

REACTIONS (6)
  - CARDIAC MALPOSITION [None]
  - COARCTATION OF THE AORTA [None]
  - CONGENITAL AORTIC ANOMALY [None]
  - CONGENITAL CARDIAC SEPTAL DEFECT [None]
  - DRUG EXPOSURE DURING PREGNANCY [None]
  - TRANSMISSION OF DRUG VIA SEMEN [None]
